FAERS Safety Report 20657017 (Version 3)
Quarter: 2022Q2

REPORT INFORMATION
  Report Type: Spontaneous
  Country: TW (occurrence: TW)
  Receive Date: 20220331
  Receipt Date: 20220506
  Transmission Date: 20220721
  Serious: Yes (Other)
  Sender: FDA-Public Use
  Company Number: TW-SUN PHARMACEUTICAL INDUSTRIES LTD-2022R1-330963

PATIENT
  Age: 38 Year
  Sex: Female

DRUGS (7)
  1. CARBOPLATIN [Suspect]
     Active Substance: CARBOPLATIN
     Indication: Lymphoma
     Dosage: UNK
     Route: 042
     Dates: start: 20201114, end: 202012
  2. CISPLATIN [Suspect]
     Active Substance: CISPLATIN
     Indication: Lymphoma
     Dosage: UNK
     Route: 042
  3. METHYLPREDNISOLONE [Suspect]
     Active Substance: METHYLPREDNISOLONE
     Indication: Lymphoma
     Dosage: UNK
     Route: 042
  4. METHOTREXATE [Suspect]
     Active Substance: METHOTREXATE
     Indication: Chemotherapy
     Dosage: UNK/HIGH DOSE
     Route: 065
  5. CYTARABINE [Suspect]
     Active Substance: CYTARABINE
     Indication: Chemotherapy
     Dosage: UNK
     Route: 065
  6. ETOPOSIDE [Suspect]
     Active Substance: ETOPOSIDE
     Indication: Chemotherapy
     Dosage: UNK
     Route: 065
  7. IFOSFAMIDE [Suspect]
     Active Substance: IFOSFAMIDE
     Indication: Chemotherapy
     Dosage: 5000MG D1/150MG D1-D4
     Route: 065

REACTIONS (1)
  - Therapy non-responder [Unknown]
